FAERS Safety Report 5626558-2 (Version None)
Quarter: 2008Q1

REPORT INFORMATION
  Report Type: 
  Country: None (occurrence: None)
  Receive Date: 20080214
  Receipt Date: 20080204
  Transmission Date: 20080703
  Serious: Yes (Other)
  Sender: FDA-Public Use
  Company Number: IL-ELI_LILLY_AND_COMPANY-IL200802000719

PATIENT
  Sex: Female

DRUGS (4)
  1. CYMBALTA [Suspect]
     Indication: NEURALGIA
     Dosage: UNK UNK, DAILY (1/D)
     Route: 048
  2. PK-MERZ [Interacting]
     Indication: PARKINSON'S DISEASE
     Dosage: UNK, UNKNOWN
  3. DOPICAR [Concomitant]
     Indication: PARKINSON'S DISEASE
     Dosage: UNK, UNKNOWN
  4. COMTAN [Concomitant]
     Indication: PARKINSON'S DISEASE
     Dosage: UNK, UNKNOWN

REACTIONS (3)
  - DRUG INTERACTION [None]
  - HALLUCINATION [None]
  - PSYCHOTIC DISORDER [None]
